FAERS Safety Report 8992837 (Version 4)
Quarter: 2013Q1

REPORT INFORMATION
  Report Type: Spontaneous
  Country: JP (occurrence: JP)
  Receive Date: 20130102
  Receipt Date: 20130211
  Transmission Date: 20140127
  Serious: Yes (Hospitalization)
  Sender: FDA-Public Use
  Company Number: JP-TEVA-377250ISR

PATIENT
  Age: 51 None
  Sex: Male

DRUGS (3)
  1. PALNAC [Suspect]
     Indication: URINARY RETENTION
     Dosage: .2 MILLIGRAM DAILY;
     Route: 048
     Dates: start: 20121201
  2. DIOVAN [Interacting]
     Indication: HYPERTENSION
     Dosage: 40 MILLIGRAM DAILY;
     Route: 048
     Dates: start: 2011, end: 20121201
  3. ETIZOLAM [Concomitant]
     Dosage: .5 MILLIGRAM DAILY;
     Route: 048

REACTIONS (2)
  - Loss of consciousness [Recovered/Resolved]
  - Drug interaction [Unknown]
